FAERS Safety Report 8270557-1 (Version None)
Quarter: 2012Q2

REPORT INFORMATION
  Report Type: 
  Country: None (occurrence: None)
  Receive Date: 20120406
  Receipt Date: 20120324
  Transmission Date: 20120825
  Serious: Yes (Hospitalization)
  Sender: FDA-Public Use
  Company Number: 2012AP000837

PATIENT
  Age: 25 Year
  Sex: Female

DRUGS (3)
  1. TOPIRAMATE [Suspect]
     Indication: STATUS EPILEPTICUS
     Dosage: 800 MG;QD
  2. CLOZAPINE [Concomitant]
  3. PHENYTOIN [Concomitant]

REACTIONS (2)
  - NEPHROLITHIASIS [None]
  - SEPSIS [None]
